FAERS Safety Report 18415676 (Version 4)
Quarter: 2020Q4

REPORT INFORMATION
  Report Type: Spontaneous
  Country: DK (occurrence: DK)
  Receive Date: 20201022
  Receipt Date: 20201125
  Transmission Date: 20210114
  Serious: Yes (Death, Life-Threatening, Hospitalization, Other)
  Sender: FDA-Public Use
  Company Number: NVSC2020DK281463

PATIENT
  Age: 72 Year
  Sex: Female

DRUGS (2)
  1. PROPRANOLOL [Suspect]
     Active Substance: PROPRANOLOL HYDROCHLORIDE
     Indication: HYPERTENSION
     Dosage: 160 MG, QD (80 MG, BID)
     Route: 048
  2. METOPROLOL. [Suspect]
     Active Substance: METOPROLOL
     Indication: HYPERTENSION
     Dosage: 100 MG, QD (50 MG, BID)
     Route: 048

REACTIONS (16)
  - Gastrointestinal necrosis [Fatal]
  - Bradycardia [Fatal]
  - Accidental exposure to product [Fatal]
  - Hypotension [Fatal]
  - Hypoperfusion [Fatal]
  - Fatigue [Fatal]
  - Dizziness [Fatal]
  - Abdominal distension [Fatal]
  - Accidental overdose [Fatal]
  - Nausea [Fatal]
  - Toxicity to various agents [Fatal]
  - Anuria [Fatal]
  - Vomiting [Fatal]
  - Intestinal ischaemia [Fatal]
  - Metabolic acidosis [Fatal]
  - Loss of consciousness [Fatal]

NARRATIVE: CASE EVENT DATE: 201607
